FAERS Safety Report 12615714 (Version 2)
Quarter: 2017Q2

REPORT INFORMATION
  Report Type: Spontaneous
  Country: US (occurrence: US)
  Receive Date: 20160802
  Receipt Date: 20170502
  Transmission Date: 20170830
  Serious: No
  Sender: FDA-Public Use
  Company Number: US-IMPAX LABORATORIES, INC-2016-IPXL-00703

PATIENT
  Sex: Female
  Weight: 52 kg

DRUGS (5)
  1. RYTARY [Suspect]
     Active Substance: CARBIDOPA\LEVODOPA
     Indication: PARKINSON^S DISEASE
     Dosage: (16 CAPSULES DAILY)
     Route: 048
     Dates: start: 201507, end: 20160519
  2. LIPITOR [Concomitant]
     Active Substance: ATORVASTATIN CALCIUM
     Indication: PRODUCT USED FOR UNKNOWN INDICATION
     Dosage: UNK
     Route: 065
  3. ATORVASTATIN CALCIUM. [Concomitant]
     Active Substance: ATORVASTATIN CALCIUM
     Indication: PRODUCT USED FOR UNKNOWN INDICATION
     Dosage: UNK
     Route: 048
     Dates: start: 20141114
  4. RYTARY [Suspect]
     Active Substance: CARBIDOPA\LEVODOPA
     Dosage: (16 CAPSULES DAILY)
     Route: 048
     Dates: start: 20160519
  5. ASPIRIN. [Concomitant]
     Active Substance: ASPIRIN
     Indication: PRODUCT USED FOR UNKNOWN INDICATION
     Dosage: ( TWO TABLETS DAILY)
     Route: 065
     Dates: start: 20150210

REACTIONS (9)
  - Dystonia [Unknown]
  - Pain [Unknown]
  - Pain in extremity [Unknown]
  - Drug effect incomplete [Unknown]
  - Tremor [Unknown]
  - Dysphagia [Unknown]
  - Insomnia [Unknown]
  - Dyskinesia [Unknown]
  - Therapeutic response shortened [Unknown]
